FAERS Safety Report 23429499 (Version 2)
Quarter: 2024Q1

REPORT INFORMATION
  Report Type: Spontaneous
  Country: US (occurrence: US)
  Receive Date: 20240122
  Receipt Date: 20240304
  Transmission Date: 20240410
  Serious: Yes (Hospitalization, Other)
  Sender: FDA-Public Use
  Company Number: US-PFIZER INC-202400013650

PATIENT
  Age: 71 Year
  Sex: Male
  Weight: 99.79 kg

DRUGS (19)
  1. VYNDAMAX [Suspect]
     Active Substance: TAFAMIDIS
     Indication: Amyloidosis
     Dosage: 61 MG, 1X/DAY
     Route: 048
     Dates: start: 202212
  2. VYNDAMAX [Suspect]
     Active Substance: TAFAMIDIS
     Dosage: 61 MG, 1X/DAY
     Dates: start: 202303
  3. ALBUTEROL [Concomitant]
     Active Substance: ALBUTEROL
     Indication: Dyspnoea
     Dosage: INHALE 2 PUFFS INTO THE LUNGS EVERY 6 HOURS AS NEEDED FOR WHEEZING
  4. ALBUTEROL [Concomitant]
     Active Substance: ALBUTEROL
     Indication: Wheezing
  5. ZYLOPRIM [Concomitant]
     Active Substance: ALLOPURINOL
     Dosage: TAKE 1 TABLET VIA G-TUBE DAILY
  6. ELIQUIS [Concomitant]
     Active Substance: APIXABAN
     Dosage: TAKE 1 TABLET BY MOUTH 2 TIMES DAILY
     Route: 048
  7. ASPIRIN [Concomitant]
     Active Substance: ASPIRIN
     Dosage: CHEW AND SWALLOW 1 TABLET DAILY
     Route: 048
  8. LIPITOR [Concomitant]
     Active Substance: ATORVASTATIN CALCIUM
     Indication: Type 2 diabetes mellitus
     Dosage: TAKE 1 TABLET BY MOUTH DAILY
     Route: 048
  9. CHOLECALCIFEROL [Concomitant]
     Active Substance: CHOLECALCIFEROL
     Dosage: TAKE 1 TABLET BY MOUTH DAILY
     Route: 048
  10. VITAMIN B12 [Concomitant]
     Active Substance: CYANOCOBALAMIN
     Dosage: TAKE 1 TABLET BY MOUTH DAILY
     Route: 048
  11. JARDIANCE [Concomitant]
     Active Substance: EMPAGLIFLOZIN
     Indication: Type 2 diabetes mellitus
     Dosage: TAKE 1 TABLET BY MOUTH DAILY
     Route: 048
  12. LASIX [Concomitant]
     Active Substance: FUROSEMIDE
     Indication: Cardiomyopathy
     Dosage: TAKE 1 TABLET BY MOUTH DAILY
     Route: 048
  13. LASIX [Concomitant]
     Active Substance: FUROSEMIDE
     Indication: Cardiac failure
  14. NOVOLOG [Concomitant]
     Active Substance: INSULIN ASPART
     Indication: Type 2 diabetes mellitus
     Dosage: INJECT 25 UNITS UNDER THE SKIN 3 TIMES DAILY (BEFORE MEALS) CURRENTLY ON TUBE FEED, GIVE PRIOR TO ST
     Route: 058
  15. PRINIVIL [Concomitant]
     Active Substance: LISINOPRIL
     Dosage: TAKE 1 TABLET BY MOUTH DAILY
     Route: 048
  16. MELATONIN [Concomitant]
     Active Substance: MELATONIN
     Indication: Insomnia
     Dosage: TAKE 1 TABLET BY MOUTH NIGHTLY AS NEEDED
     Route: 048
  17. MIRALAX [Concomitant]
     Active Substance: POLYETHYLENE GLYCOL 3350
     Indication: Constipation
     Dosage: TAKE 1 DILUTED PACKET BY MOUTH DAILY AS NEEDED FOR CONSTIPATION (NO BM FOR 2 DAYS)
     Route: 048
  18. INSULIN GLARGINE [Concomitant]
     Active Substance: INSULIN GLARGINE
     Indication: Type 2 diabetes mellitus
     Dosage: INJECT 36 UNITS UNDER THE SKIN EVERY MORNING
     Route: 058
  19. ALDACTONE [Concomitant]
     Active Substance: SPIRONOLACTONE
     Indication: Cardiac failure congestive
     Dosage: TAKE 0.5 TABLETS BY MOUTH EVERY MORNING HOLD FOR LESS THAN 100
     Route: 048

REACTIONS (1)
  - Cerebrovascular accident [Not Recovered/Not Resolved]

NARRATIVE: CASE EVENT DATE: 20230514
